FAERS Safety Report 17386648 (Version 1)
Quarter: 2020Q1

REPORT INFORMATION
  Report Type: Spontaneous
  Country: JP (occurrence: JP)
  Receive Date: 20200206
  Receipt Date: 20200206
  Transmission Date: 20200409
  Serious: Yes (Other)
  Sender: FDA-Public Use
  Company Number: JP-PFIZER INC-2019535521

PATIENT
  Age: 83 Year
  Sex: Male

DRUGS (11)
  1. CRESTOR OD [Concomitant]
     Active Substance: ROSUVASTATIN CALCIUM
     Dosage: 1 DF, 1X/DAY
  2. LYRICA [Concomitant]
     Active Substance: PREGABALIN
     Dosage: 1 DF, 2X/DAY
  3. TALION [BEPOTASTINE BESILATE] [Concomitant]
     Active Substance: BEPOTASTINE BESYLATE
     Dosage: 1 DF, 2X/DAY
  4. XALATAN [Suspect]
     Active Substance: LATANOPROST
     Indication: GLAUCOMA
     Dosage: UNK, 1X/DAY (RIGHT EYE)
     Route: 047
     Dates: start: 20170518, end: 20191029
  5. CONIEL [Concomitant]
     Active Substance: BENIDIPINE HYDROCHLORIDE
     Dosage: 1 DF, 2X/DAY
  6. AZORGA [Concomitant]
     Active Substance: BRINZOLAMIDE\TIMOLOL MALEATE
     Indication: GLAUCOMA
     Dosage: UNK UNK, 2X/DAY
     Route: 047
     Dates: start: 20170314
  7. ALPHAGAN P [Concomitant]
     Active Substance: BRIMONIDINE TARTRATE
     Indication: GLAUCOMA
     Dosage: UNK UNK, 2X/DAY
     Route: 047
     Dates: start: 20171102
  8. GLANATEC [Concomitant]
     Active Substance: RIPASUDIL HYDROCHLORIDE DIHYDRATE
     Indication: GLAUCOMA
     Dosage: UNK UNK, 2X/DAY
     Route: 047
     Dates: start: 20180109
  9. BAYASPIRIN [Concomitant]
     Active Substance: ASPIRIN
     Dosage: 1 DF, 1X/DAY
  10. ZYLORIC [Concomitant]
     Active Substance: ALLOPURINOL
     Dosage: 1 DF, 1X/DAY
  11. PARIET [Concomitant]
     Active Substance: RABEPRAZOLE SODIUM
     Dosage: 1 DF, 1X/DAY

REACTIONS (2)
  - Visual field defect [Unknown]
  - Eyelid ptosis [Not Recovered/Not Resolved]

NARRATIVE: CASE EVENT DATE: 201910
